FAERS Safety Report 5201437-3 (Version None)
Quarter: 2007Q1

REPORT INFORMATION
  Report Type: 
  Country: None (occurrence: None)
  Receive Date: 20070104
  Receipt Date: 20061220
  Transmission Date: 20070707
  Serious: Yes (Other)
  Sender: FDA-Public Use
  Company Number: 2006-152176-NL

PATIENT
  Age: 26 Year
  Sex: Female
  Weight: 88.5 kg

DRUGS (4)
  1. NUVARING [Suspect]
     Indication: CONTRACEPTION
     Dosage: VAGINAL, 3 WEEKS IN, 1 WEEK OUT
     Route: 067
     Dates: start: 20040101
  2. INSULIN [Concomitant]
  3. WELLBUTRIN [Concomitant]
  4. PAXIL [Concomitant]

REACTIONS (7)
  - BLOOD GLUCOSE INCREASED [None]
  - FATIGUE [None]
  - HEADACHE [None]
  - HUNGER [None]
  - INCREASED APPETITE [None]
  - POLLAKIURIA [None]
  - THIRST [None]
